FAERS Safety Report 10862441 (Version 1)
Quarter: 2015Q1

REPORT INFORMATION
  Report Type: Spontaneous
  Country: US (occurrence: None)
  Receive Date: 20150219
  Receipt Date: 20150219
  Transmission Date: 20150721
  Serious: Yes (Other)
  Sender: FDA-Public Use
  Company Number: 54973 AE # 1595

PATIENT
  Age: 07 Month
  Sex: Male
  Weight: 10.89 kg

DRUGS (2)
  1. BABY TEETHING [Suspect]
     Active Substance: ARABICA COFFEE BEAN\ATROPA BELLADONNA\CALCIUM PHOSPHATE\CHAMOMILE
     Indication: PYREXIA
     Dosage: 2 TABS
     Route: 048
  2. BABY TEETHING [Suspect]
     Active Substance: ARABICA COFFEE BEAN\ATROPA BELLADONNA\CALCIUM PHOSPHATE\CHAMOMILE
     Indication: TEETHING
     Dosage: 2 TABS
     Route: 048

REACTIONS (5)
  - Head titubation [None]
  - Eye movement disorder [None]
  - Seizure [None]
  - Muscle twitching [None]
  - Irritability [None]

NARRATIVE: CASE EVENT DATE: 20150127
